FAERS Safety Report 4831085-6 (Version None)
Quarter: 2005Q4

REPORT INFORMATION
  Report Type: 
  Country: None (occurrence: None)
  Receive Date: 20051118
  Receipt Date: 20040813
  Transmission Date: 20060501
  Serious: Yes (Hospitalization)
  Sender: FDA-Public Use
  Company Number: FR-ABBOTT-04P-056-0270762-00

PATIENT
  Age: 57 Year
  Sex: Male

DRUGS (3)
  1. LIPANTHYL TABLET [Suspect]
     Indication: LIPID METABOLISM DISORDER
     Route: 048
     Dates: start: 20030101, end: 20040720
  2. PERINDOPRIL [Suspect]
     Indication: ESSENTIAL HYPERTENSION
     Dates: start: 20000101, end: 20040720
  3. TOCOPHEROL CONCENTRATE CAP [Suspect]
     Indication: DRUG USE FOR UNKNOWN INDICATION
     Dates: start: 20040701, end: 20040720

REACTIONS (13)
  - ACINETOBACTER INFECTION [None]
  - ALANINE AMINOTRANSFERASE INCREASED [None]
  - ASPARTATE AMINOTRANSFERASE INCREASED [None]
  - BLOOD POTASSIUM DECREASED [None]
  - C-REACTIVE PROTEIN INCREASED [None]
  - CHILLS [None]
  - ESCHERICHIA INFECTION [None]
  - FLATULENCE [None]
  - PANCREAS INFECTION [None]
  - PANCREATIC PSEUDOCYST [None]
  - PANCREATITIS [None]
  - PERIPANCREATIC FLUID COLLECTION [None]
  - STENOTROPHOMONAS INFECTION [None]
